FAERS Safety Report 10213761 (Version 1)
Quarter: 2014Q2

REPORT INFORMATION
  Report Type: Other
  Country: ES (occurrence: ES)
  Receive Date: 20140603
  Receipt Date: 20140603
  Transmission Date: 20141212
  Serious: Yes (Hospitalization)
  Sender: FDA-Public Use
  Company Number: ES-ASTELLAS-2014EU006580

PATIENT
  Age: 71 Year
  Sex: Male

DRUGS (1)
  1. BETMIGA [Suspect]
     Indication: MICTURITION DISORDER
     Route: 048
     Dates: start: 20140430, end: 20140501

REACTIONS (1)
  - Atrial fibrillation [Recovering/Resolving]
